FAERS Safety Report 4360596-5 (Version None)
Quarter: 2004Q2

REPORT INFORMATION
  Report Type: 
  Country: None (occurrence: None)
  Receive Date: 20040519
  Receipt Date: 20040420
  Transmission Date: 20050107
  Serious: Yes (Disabling)
  Sender: FDA-Public Use
  Company Number: PHFR2004GB01894

PATIENT
  Age: 59 Year
  Sex: Female

DRUGS (2)
  1. LAMISIL [Suspect]
     Indication: NAIL TINEA
     Dosage: 250MG/DAY
     Route: 048
     Dates: start: 20040302, end: 20040403
  2. THYROXINE [Concomitant]
     Indication: HYPOTHYROIDISM
     Dosage: 75MG/DAY
     Route: 048

REACTIONS (5)
  - AGEUSIA [None]
  - ANOREXIA [None]
  - SALIVARY HYPERSECRETION [None]
  - TONGUE COATED [None]
  - WEIGHT DECREASED [None]
